FAERS Safety Report 5845850-X (Version None)
Quarter: 2008Q3

REPORT INFORMATION
  Report Type: 
  Country: None (occurrence: None)
  Receive Date: 20080814
  Receipt Date: 20080807
  Transmission Date: 20090109
  Serious: Yes (Other)
  Sender: FDA-Public Use
  Company Number: US-BOEHRINGER INGELHEIM GMBH, GERMANY-2008-BP-10973BP

PATIENT
  Sex: Female

DRUGS (16)
  1. MIRAPEX [Suspect]
     Indication: PARKINSON'S DISEASE
     Route: 048
     Dates: start: 20040928
  2. GABAPENTIN [Concomitant]
  3. AMANTADINE HCL [Concomitant]
  4. DETROL LA [Concomitant]
  5. LEVOTHYROXINE SODIUM [Concomitant]
  6. ZONEGRAN [Concomitant]
  7. SINEMET [Concomitant]
  8. ACTONEL [Concomitant]
  9. LEVOXYL [Concomitant]
  10. SINGULAIR [Concomitant]
  11. ASMANEX TWISTHALER [Concomitant]
  12. ACLAEPT [Concomitant]
  13. MIDRODINE [Concomitant]
  14. ALBUTEROL [Concomitant]
  15. HYDROCODONE BITARTRATE AND ACETAMINOPHEN [Concomitant]
  16. BETIMOL [Concomitant]

REACTIONS (1)
  - MALIGNANT MELANOMA [None]
